FAERS Safety Report 10716792 (Version 2)
Quarter: 2015Q1

REPORT INFORMATION
  Report Type: Spontaneous
  Country: NL (occurrence: NL)
  Receive Date: 20150116
  Receipt Date: 20150130
  Transmission Date: 20150721
  Serious: Yes (Hospitalization, Disabling, Other)
  Sender: FDA-Public Use
  Company Number: NL-ASTRAZENECA-2015SE03752

PATIENT
  Age: 24478 Day
  Sex: Male
  Weight: 90 kg

DRUGS (3)
  1. PREDNISON [Concomitant]
     Active Substance: PREDNISONE
     Dates: start: 20140717
  2. CALCICHEW [Concomitant]
     Active Substance: CALCIUM CARBONATE
  3. ZOLADEX [Suspect]
     Active Substance: GOSERELIN ACETATE
     Indication: PROSTATE CANCER
     Route: 058
     Dates: start: 20141204

REACTIONS (3)
  - Pituitary haemorrhage [Unknown]
  - Headache [Unknown]
  - Pituitary tumour benign [Unknown]

NARRATIVE: CASE EVENT DATE: 20150104
